FAERS Safety Report 8166915-6 (Version None)
Quarter: 2012Q1

REPORT INFORMATION
  Report Type: 
  Country: None (occurrence: None)
  Receive Date: 20120221
  Receipt Date: 20120206
  Transmission Date: 20120608
  Serious: Yes (Other)
  Sender: FDA-Public Use
  Company Number: 2012P1004189

PATIENT
  Age: 13 Year
  Sex: Female

DRUGS (1)
  1. SOLODYN [Suspect]
     Dosage: 105 MG;

REACTIONS (1)
  - OPTIC NEURITIS [None]
